FAERS Safety Report 6462472-0 (Version None)
Quarter: 2009Q4

REPORT INFORMATION
  Report Type: 
  Country: None (occurrence: None)
  Receive Date: 20091130
  Receipt Date: 20091118
  Transmission Date: 20100525
  Serious: Yes (Hospitalization)
  Sender: FDA-Public Use
  Company Number: US-ELI_LILLY_AND_COMPANY-US200902005607

PATIENT
  Sex: Male

DRUGS (12)
  1. FORTEO [Suspect]
     Dosage: UNK, DAILY (1/D)
     Route: 065
     Dates: start: 20081101, end: 20091101
  2. ALAVERT [Concomitant]
  3. ATIVAN [Concomitant]
     Dosage: 1 MG, UNK
  4. CENTRUM SILVER [Concomitant]
  5. DIOVAN [Concomitant]
     Dosage: 60 MG, DAILY (1/D)
  6. AMOXIDEL [Concomitant]
     Dosage: 25 MG, UNK
  7. METAMUCIL [Concomitant]
  8. OMEPRAZOLE [Concomitant]
     Dosage: 20 MG, 2/D
  9. SIMVASTATIN [Concomitant]
     Dosage: 20 MG, DAILY (1/D)
  10. TRICOR [Concomitant]
     Dosage: 140 MG, DAILY (1/D)
  11. TYLENOL (CAPLET) [Concomitant]
     Dosage: UNK, AS NEEDED
  12. ERGOCALCIFEROL [Concomitant]
     Dosage: 3000 MG, WEEKLY (1/W)

REACTIONS (3)
  - INCREASED APPETITE [None]
  - ULCER HAEMORRHAGE [None]
  - WEIGHT DECREASED [None]
